FAERS Safety Report 15059085 (Version 1)
Quarter: 2018Q2

REPORT INFORMATION
  Report Type: Spontaneous
  Country: US (occurrence: US)
  Receive Date: 20180625
  Receipt Date: 20180625
  Transmission Date: 20180711
  Serious: No
  Sender: FDA-Public Use
  Company Number: US-MYLANLABS-2018M1039323

PATIENT

DRUGS (1)
  1. ESTRADIOL TRANSDERMAL SYSTEM [Suspect]
     Active Substance: ESTRADIOL
     Indication: PRODUCT USED FOR UNKNOWN INDICATION
     Dosage: FOR MANY YEARS 0.1 MG, Q2W
     Route: 062

REACTIONS (10)
  - Drug ineffective [Unknown]
  - Application site irritation [Not Recovered/Not Resolved]
  - Application site pruritus [Not Recovered/Not Resolved]
  - Application site erythema [Not Recovered/Not Resolved]
  - Headache [Not Recovered/Not Resolved]
  - Nausea [Not Recovered/Not Resolved]
  - Application site vesicles [Not Recovered/Not Resolved]
  - Fatigue [Not Recovered/Not Resolved]
  - Physical product label issue [Unknown]
  - Skin discomfort [Not Recovered/Not Resolved]
